FAERS Safety Report 8971088 (Version 1)
Quarter: 2012Q4

REPORT INFORMATION
  Report Type: 
  Country: CH (occurrence: CH)
  Receive Date: 20121218
  Receipt Date: 20121218
  Transmission Date: 20130627
  Serious: Yes (Hospitalization)
  Sender: FDA-Public Use
  Company Number: CH-PFIZER INC-2012316716

PATIENT
  Age: 37 Year
  Sex: Female

DRUGS (14)
  1. SEVREDOL [Suspect]
     Indication: POSTOPERATIVE PAIN
     Dosage: 20 mg, six times daily
     Route: 048
     Dates: start: 20120921, end: 20120922
  2. SEVREDOL [Suspect]
     Dosage: 10 mg, as needed but up to four times daily
     Route: 048
  3. CLEXANE [Concomitant]
     Dosage: UNK
  4. CETIRIZINE [Concomitant]
     Dosage: UNK
  5. NERVIFENE [Concomitant]
     Dosage: UNK
  6. TRANXILIUM [Concomitant]
     Dosage: UNK
  7. CIPRALEX [Concomitant]
     Dosage: UNK
  8. NEXIUM [Concomitant]
     Dosage: UNK
  9. NOVALGIN [Concomitant]
     Dosage: UNK
  10. TRILEPTAL [Concomitant]
     Dosage: UNK
  11. DAFALGAN [Concomitant]
     Dosage: UNK
  12. LYRICA [Concomitant]
     Dosage: UNK
  13. SIRDALUD [Concomitant]
     Dosage: UNK
  14. TRITTICO [Concomitant]
     Dosage: UNK

REACTIONS (2)
  - Respiratory disorder [Recovered/Resolved]
  - Ileus paralytic [Recovering/Resolving]
